FAERS Safety Report 24614319 (Version 1)
Quarter: 2024Q4

REPORT INFORMATION
  Report Type: Spontaneous
  Country: BG (occurrence: BG)
  Receive Date: 20241113
  Receipt Date: 20241113
  Transmission Date: 20250115
  Serious: Yes (Other)
  Sender: ASTELLAS
  Company Number: BG-ASTELLAS-2024-AER-017352

PATIENT
  Age: 45 Year
  Sex: Female

DRUGS (6)
  1. MIRABEGRON [Suspect]
     Active Substance: MIRABEGRON
     Indication: Product used for unknown indication
     Route: 065
  2. MIRABEGRON [Suspect]
     Active Substance: MIRABEGRON
     Route: 065
  3. MIRABEGRON [Suspect]
     Active Substance: MIRABEGRON
     Route: 065
  4. SOLIFENACIN [Suspect]
     Active Substance: SOLIFENACIN
     Indication: Product used for unknown indication
     Route: 065
  5. SOLIFENACIN [Suspect]
     Active Substance: SOLIFENACIN
     Route: 065
  6. SOLIFENACIN [Suspect]
     Active Substance: SOLIFENACIN
     Dosage: 2X5 MG
     Route: 065

REACTIONS (5)
  - Hydronephrosis [Unknown]
  - Back pain [Unknown]
  - Chlamydial infection [Unknown]
  - Culture urine positive [Unknown]
  - Drug ineffective [Unknown]
